FAERS Safety Report 17226066 (Version 1)
Quarter: 2020Q1

REPORT INFORMATION
  Report Type: Spontaneous
  Country: DE (occurrence: DE)
  Receive Date: 20200102
  Receipt Date: 20200102
  Transmission Date: 20200409
  Serious: Yes (Other)
  Sender: FDA-Public Use
  Company Number: DE-JNJFOC-20200101324

PATIENT
  Age: 28 Year
  Sex: Female

DRUGS (2)
  1. AZATHIOPRINE. [Concomitant]
     Active Substance: AZATHIOPRINE
     Indication: CROHN^S DISEASE
     Dosage: 150 MG, QD
     Route: 065
  2. REMICADE [Suspect]
     Active Substance: INFLIXIMAB
     Indication: CROHN^S DISEASE
     Dosage: 5 MG/KG (5 MG/KG, UNK (5 MG/KG, 4 INFUSIONS IN 2 YEARS))
     Route: 042

REACTIONS (2)
  - Peripheral motor neuropathy [Recovering/Resolving]
  - Nerve conduction studies abnormal [Recovering/Resolving]
